FAERS Safety Report 11180830 (Version 1)
Quarter: 2015Q2

REPORT INFORMATION
  Report Type: Spontaneous
  Country: JP (occurrence: None)
  Receive Date: 20150609
  Receipt Date: 20150609
  Transmission Date: 20150821
  Serious: Yes (Other)
  Sender: FDA-Public Use
  Company Number: 2015-JP-0077

PATIENT
  Age: 30 Year
  Sex: Female

DRUGS (1)
  1. FARESTON [Suspect]
     Active Substance: TOREMIFENE CITRATE
     Indication: INFERTILITY
     Dosage: TAKEN IN MORNING ANT AT NON: 40 MG X 2 PER 1 DAY

REACTIONS (3)
  - Wrong drug administered [None]
  - No adverse event [None]
  - Drug dispensing error [None]
